FAERS Safety Report 8236601 (Version 2)
Quarter: 2013Q1

REPORT INFORMATION
  Report Type: Report from Study
  Country: NL (occurrence: NL)
  Receive Date: 20111108
  Receipt Date: 20130109
  Transmission Date: 20140127
  Serious: Yes (Hospitalization)
  Sender: FDA-Public Use
  Company Number: NL-ROCHE-1003382

PATIENT
  Age: 75 Year
  Sex: Female

DRUGS (18)
  1. CAPECITABINE [Suspect]
     Indication: RECTAL CANCER
     Route: 048
     Dates: start: 20110426, end: 20110511
  2. PROPANOLOLI HYDROCHLORIDUM [Concomitant]
     Route: 065
  3. DIPHANTOINE [Concomitant]
     Route: 065
  4. DURAGESIC [Concomitant]
     Route: 062
  5. MAGNESIUM HYDROXIDE [Concomitant]
     Route: 048
  6. LYRICA [Concomitant]
     Route: 048
  7. PARACETAMOL [Concomitant]
     Route: 065
  8. DIPIDOLOR [Concomitant]
  9. DICLOFENAC SODIUM [Concomitant]
     Route: 054
  10. OXYNORM [Concomitant]
     Route: 048
  11. OXYCONTIN [Concomitant]
     Route: 048
  12. PROPRANOLOL HCL [Concomitant]
     Route: 048
  13. DIPHENADIONE [Concomitant]
     Route: 048
  14. FRAGMIN [Concomitant]
     Route: 058
  15. OCTREOTIDE [Concomitant]
     Route: 058
  16. LOPERAMIDE HCL [Concomitant]
     Route: 048
  17. ACTIQ [Concomitant]
  18. CIPROFLOXACIN [Concomitant]
     Route: 048

REACTIONS (9)
  - Dehydration [Unknown]
  - Malaise [Unknown]
  - Decreased appetite [Unknown]
  - Depression [Unknown]
  - Urinary retention [Unknown]
  - Weight decreased [Unknown]
  - Fractured sacrum [Unknown]
  - Pelvic pain [Unknown]
  - Pain in extremity [Unknown]
